FAERS Safety Report 15688614 (Version 1)
Quarter: 2018Q4

REPORT INFORMATION
  Report Type: Spontaneous
  Country: FR (occurrence: FR)
  Receive Date: 20181205
  Receipt Date: 20181205
  Transmission Date: 20190205
  Serious: Yes (Hospitalization)
  Sender: FDA-Public Use
  Company Number: FR-ACCORD-095002

PATIENT
  Age: 60 Year
  Sex: Female

DRUGS (2)
  1. TAXOTERE [Suspect]
     Active Substance: DOCETAXEL
     Indication: LUNG ADENOCARCINOMA STAGE IV
     Dosage: UNSPECIFIED
     Route: 042
     Dates: start: 20170509, end: 20170509
  2. IRINOTECAN [Suspect]
     Active Substance: IRINOTECAN
     Indication: LUNG ADENOCARCINOMA STAGE IV
     Dosage: UNSPECIFIED
     Route: 042
     Dates: start: 20170509, end: 20170509

REACTIONS (5)
  - Weight decreased [Recovering/Resolving]
  - General physical health deterioration [Recovered/Resolved]
  - Vomiting [Recovered/Resolved]
  - Off label use [Unknown]
  - Nausea [Recovered/Resolved]

NARRATIVE: CASE EVENT DATE: 201705
